FAERS Safety Report 15967696 (Version 1)
Quarter: 2019Q1

REPORT INFORMATION
  Report Type: Spontaneous
  Country: US (occurrence: US)
  Receive Date: 20190208
  Receipt Date: 20190208
  Transmission Date: 20190418
  Serious: No
  Sender: FDA-Public Use
  Company Number: None

PATIENT
  Age: 71 Year
  Sex: Female
  Weight: 54.43 kg

DRUGS (7)
  1. ALLERTEC [Concomitant]
     Active Substance: CETIRIZINE HYDROCHLORIDE
  2. VITAMIN C [Concomitant]
     Active Substance: ASCORBIC ACID
  3. VITAMIN D [Concomitant]
     Active Substance: CHOLECALCIFEROL
  4. OCUVITE [Concomitant]
     Active Substance: VITAMINS
  5. VALACYCLOVIR [Concomitant]
     Active Substance: VALACYCLOVIR HYDROCHLORIDE
  6. PREDNISOLONE/GATIFLOXACIN/BROMFENAC 1%/0.5%/0.09% OPHTHALMIC SOLUTION - 3 ML [Suspect]
     Active Substance: BROMFENAC\GATIFLOXACIN\PREDNISOLONE
     Indication: CATARACT OPERATION
     Dosage: WK 1 - 4 DROPS?WK 2 - 3 DROPS?WK 3 - 2 DROPS?WK 4 - 1 DROP
     Route: 047
     Dates: start: 20181212, end: 20181229
  7. PREDNISOLONE/GATIFLOXACIN/BROMFENAC 1%/0.5%/0.09% OPHTHALMIC SOLUTION - 3 ML [Suspect]
     Active Substance: BROMFENAC\GATIFLOXACIN\PREDNISOLONE
     Indication: POSTOPERATIVE CARE
     Dosage: WK 1 - 4 DROPS?WK 2 - 3 DROPS?WK 3 - 2 DROPS?WK 4 - 1 DROP
     Route: 047
     Dates: start: 20181212, end: 20181229

REACTIONS (6)
  - Aphthous ulcer [None]
  - Dyspepsia [None]
  - Product taste abnormal [None]
  - Nausea [None]
  - Recalled product [None]
  - Oral herpes [None]

NARRATIVE: CASE EVENT DATE: 20181229
